FAERS Safety Report 4622587-6 (Version None)
Quarter: 2005Q2

REPORT INFORMATION
  Report Type: 
  Country: None (occurrence: None)
  Receive Date: 20050317
  Receipt Date: 20041109
  Transmission Date: 20051028
  Serious: Yes (Hospitalization)
  Sender: FDA-Public Use
  Company Number: PHEH2004US12104

PATIENT
  Age: 14 Year
  Sex: Female

DRUGS (1)
  1. TRILEPTAL [Suspect]
     Indication: ABNORMAL BEHAVIOUR
     Dosage: ORAL
     Route: 048
     Dates: start: 20040804, end: 20041001

REACTIONS (2)
  - AGGRESSION [None]
  - AGITATION [None]
